FAERS Safety Report 5386313-8 (Version None)
Quarter: 2007Q3

REPORT INFORMATION
  Report Type: 
  Country: None (occurrence: None)
  Receive Date: 20070713
  Receipt Date: 20070709
  Transmission Date: 20080115
  Serious: Yes (Life-Threatening)
  Sender: FDA-Public Use
  Company Number: GB-AVENTIS-200713346EU

PATIENT
  Age: 56 Year
  Sex: Male
  Weight: 115.6 kg

DRUGS (20)
  1. FRUSEMIDE [Suspect]
  2. BISOPROLOL [Suspect]
  3. AMLODIPINE [Suspect]
     Indication: HYPERTENSION
  4. ESCITALOPRAM OXALATE [Suspect]
     Indication: DEPRESSION
     Dates: start: 20051219
  5. GTN SPRAY [Concomitant]
     Dosage: DOSE: 1-2 PUFFS
  6. NICORANDIL [Concomitant]
  7. BENDROFLUMETHIAZIDE [Concomitant]
  8. IBERSARTAN [Concomitant]
  9. ISOSORBIDE MONONITRATE SR [Concomitant]
  10. BETAHISTINE [Concomitant]
  11. GABAPENTIN [Concomitant]
     Indication: DIABETIC NEUROPATHY
  12. DIPYRIDAMOLE MR [Concomitant]
  13. ASPIRIN [Concomitant]
  14. THIAMINE [Concomitant]
  15. RANITIDINE [Concomitant]
  16. ROSUVASTATIN [Concomitant]
  17. NOVOMIX                            /01475801/ [Concomitant]
     Dosage: DOSE: 58/28
  18. HYDRALAZINE HCL [Concomitant]
     Indication: HYPERTENSION
  19. CLOPIDOGREL [Concomitant]
  20. ZOPICLONE [Concomitant]
     Indication: INSOMNIA

REACTIONS (4)
  - BRADYCARDIA [None]
  - HYPOTENSION [None]
  - INTENTIONAL OVERDOSE [None]
  - SOMNOLENCE [None]
